FAERS Safety Report 7915856-5 (Version None)
Quarter: 2011Q4

REPORT INFORMATION
  Report Type: 
  Country: None (occurrence: None)
  Receive Date: 20111115
  Receipt Date: 20111102
  Transmission Date: 20120403
  Serious: Yes (Other)
  Sender: FDA-Public Use
  Company Number: FR-ROCHE-1011764

PATIENT
  Sex: Male

DRUGS (1)
  1. LUCENTIS [Suspect]
     Indication: PRODUCT USED FOR UNKNOWN INDICATION
     Route: 050

REACTIONS (5)
  - ERYTHEMA [None]
  - URTICARIA [None]
  - RASH MACULO-PAPULAR [None]
  - ECZEMA [None]
  - TOXIC SKIN ERUPTION [None]
